FAERS Safety Report 16769885 (Version 1)
Quarter: 2019Q3

REPORT INFORMATION
  Report Type: Spontaneous
  Country: AU (occurrence: AU)
  Receive Date: 20190904
  Receipt Date: 20190904
  Transmission Date: 20191005
  Serious: Yes (Hospitalization, Other)
  Sender: FDA-Public Use
  Company Number: AU-ROCHE-2389766

PATIENT
  Sex: Female

DRUGS (4)
  1. CARBOPLATIN. [Suspect]
     Active Substance: CARBOPLATIN
     Indication: NON-SMALL CELL LUNG CANCER
     Route: 065
     Dates: start: 20181204
  2. BEVACIZUMAB. [Suspect]
     Active Substance: BEVACIZUMAB
     Indication: NON-SMALL CELL LUNG CANCER
     Route: 065
     Dates: start: 20181204
  3. PACLITAXEL. [Suspect]
     Active Substance: PACLITAXEL
     Indication: NON-SMALL CELL LUNG CANCER
     Route: 065
     Dates: start: 20181204
  4. ATEZOLIZUMAB. [Suspect]
     Active Substance: ATEZOLIZUMAB
     Indication: NON-SMALL CELL LUNG CANCER
     Route: 065
     Dates: start: 20181204

REACTIONS (15)
  - Pyrexia [Unknown]
  - Rash [Unknown]
  - Rhinitis [Unknown]
  - Oropharyngeal pain [Unknown]
  - Neuropathy peripheral [Unknown]
  - Proteinuria [Unknown]
  - Rash pruritic [Unknown]
  - Hypocalcaemia [Unknown]
  - Vitamin D decreased [Unknown]
  - Hypertension [Unknown]
  - Abscess drainage [Unknown]
  - Anaemia [Unknown]
  - Hypotension [Unknown]
  - Adverse drug reaction [Unknown]
  - Hypomagnesaemia [Unknown]

NARRATIVE: CASE EVENT DATE: 20190205
